FAERS Safety Report 4437587-9 (Version None)
Quarter: 2004Q3

REPORT INFORMATION
  Report Type: 
  Country: None (occurrence: None)
  Receive Date: 20040830
  Receipt Date: 20040830
  Transmission Date: 20050211
  Serious: Yes (Life-Threatening)
  Sender: FDA-Public Use
  Company Number: None

PATIENT
  Age: 67 Year
  Sex: Female
  Weight: 83.9154 kg

DRUGS (1)
  1. VIOXX [Suspect]
     Indication: RHEUMATOID ARTHRITIS
     Dosage: 1 DAILY DAILY ORAL
     Route: 048
     Dates: start: 20040822, end: 20040829

REACTIONS (2)
  - CARDIAC DISORDER [None]
  - CHEST PAIN [None]
